FAERS Safety Report 5279206-8 (Version None)
Quarter: 2007Q1

REPORT INFORMATION
  Report Type: 
  Country: None (occurrence: None)
  Receive Date: 20070328
  Receipt Date: 20070327
  Transmission Date: 20070707
  Serious: Yes (Disabling, Other)
  Sender: FDA-Public Use
  Company Number: CH-BRISTOL-MYERS SQUIBB COMPANY-13713912

PATIENT
  Age: 39 Year
  Sex: Female

DRUGS (4)
  1. REYATAZ [Suspect]
     Dates: start: 20040802
  2. LAMIVUDINE [Concomitant]
  3. RETROVIR [Concomitant]
  4. NORVIR [Concomitant]

REACTIONS (1)
  - WEIGHT INCREASED [None]
